FAERS Safety Report 17111119 (Version 1)
Quarter: 2019Q4

REPORT INFORMATION
  Report Type: Spontaneous
  Country: NL (occurrence: NL)
  Receive Date: 20191204
  Receipt Date: 20191204
  Transmission Date: 20200122
  Serious: Yes (Other)
  Sender: FDA-Public Use
  Company Number: NL-MYLANLABS-2019M1118094

PATIENT
  Age: 49 Year
  Sex: Male

DRUGS (3)
  1. ATOVAQUONE/PROGUANIL [Suspect]
     Active Substance: ATOVAQUONE\PROGUANIL
     Indication: MALARIA PROPHYLAXIS
     Dosage: 1 X DAAGS 1 TABLET
     Route: 048
     Dates: start: 20191009, end: 20191010
  2. DEPAKINE                           /00228501/ [Concomitant]
     Active Substance: VALPROIC ACID
     Dosage: UNK
  3. TEGRETOL [Concomitant]
     Active Substance: CARBAMAZEPINE

REACTIONS (1)
  - Seizure [Recovered/Resolved]

NARRATIVE: CASE EVENT DATE: 20191009
